FAERS Safety Report 9345815 (Version 1)
Quarter: 2013Q2

REPORT INFORMATION
  Report Type: Spontaneous
  Country: US (occurrence: US)
  Receive Date: 20130613
  Receipt Date: 20130613
  Transmission Date: 20140414
  Serious: No
  Sender: FDA-Public Use
  Company Number: US-BAYER-2013-072779

PATIENT
  Age: 86 Year
  Sex: Female
  Weight: 63.49 kg

DRUGS (2)
  1. ALEVE TABLET [Suspect]
     Indication: BACK PAIN
     Dosage: 2 DF, BID
     Route: 048
     Dates: start: 201304, end: 201304
  2. ALEVE CAPLET [Suspect]
     Indication: ARTHRITIS
     Dosage: 2 DF, BID
     Route: 048
     Dates: start: 201305, end: 201305

REACTIONS (4)
  - Drug ineffective [None]
  - Incorrect dose administered [None]
  - Drug ineffective [Recovered/Resolved]
  - Incorrect dose administered [None]
